FAERS Safety Report 7228894-5 (Version None)
Quarter: 2011Q1

REPORT INFORMATION
  Report Type: 
  Country: None (occurrence: None)
  Receive Date: 20110117
  Receipt Date: 20110107
  Transmission Date: 20110831
  Serious: Yes (Life-Threatening, Hospitalization)
  Sender: FDA-Public Use
  Company Number: US-ELI_LILLY_AND_COMPANY-US201101002374

PATIENT
  Sex: Male
  Weight: 83.447 kg

DRUGS (13)
  1. LISINOPRIL [Concomitant]
     Indication: HYPERTENSION
     Dosage: 20 MG, DAILY (1/D)
     Route: 048
  2. HUMULIN R [Concomitant]
     Indication: HYPERGLYCAEMIA
     Dosage: UNK IU, 4/D
     Route: 058
  3. EPLERENONE [Concomitant]
     Indication: BLOOD PRESSURE
     Dosage: 25 MG, DAILY (1/D)
     Route: 048
  4. LIPITOR [Concomitant]
     Indication: HYPERLIPIDAEMIA
     Dosage: 80 MG, DAILY (1/D)
     Route: 048
  5. HUMULIN 70/30 [Concomitant]
     Indication: HYPERGLYCAEMIA
     Dosage: UNK IU, AS NEEDED
     Route: 058
  6. TRICOR [Concomitant]
     Indication: HYPERLIPIDAEMIA
     Dosage: 145 MG, DAILY (1/D)
     Route: 048
  7. PRASUGREL HYDROCHLORIDE [Suspect]
     Indication: ACUTE CORONARY SYNDROME
     Dosage: 10 MG, OTHER
     Route: 065
     Dates: start: 20100701, end: 20100701
  8. ASPIRIN [Concomitant]
     Indication: ANTIPLATELET THERAPY
     Dosage: 81 MG, DAILY (1/D)
     Route: 065
  9. ASPIRIN [Concomitant]
     Dosage: 325 MG, DAILY (1/D)
     Route: 048
     Dates: start: 20100701
  10. GABAPENTIN [Concomitant]
     Indication: PAIN
     Dosage: 500 MG, 3/D
     Route: 048
  11. COREG [Concomitant]
     Indication: BLOOD PRESSURE
     Dosage: 50 MG, 2/D
     Route: 048
  12. PRASUGREL HYDROCHLORIDE [Suspect]
     Dosage: 10 MG, DAILY (1/D)
     Route: 065
  13. METFORMIN HCL [Concomitant]
     Indication: HYPERGLYCAEMIA
     Dosage: 1000 MG, 2/D
     Route: 048

REACTIONS (1)
  - CARDIO-RESPIRATORY ARREST [None]
